FAERS Safety Report 25587325 (Version 1)
Quarter: 2025Q3

REPORT INFORMATION
  Report Type: Report from Study
  Country: EU (occurrence: EU)
  Receive Date: 20250721
  Receipt Date: 20250721
  Transmission Date: 20251021
  Serious: Yes (Other)
  Sender: MYLAN
  Company Number: None

PATIENT
  Age: 31 Year
  Sex: Female

DRUGS (16)
  1. CITALOPRAM [Suspect]
     Active Substance: CITALOPRAM
     Indication: Product used for unknown indication
  2. CITALOPRAM [Suspect]
     Active Substance: CITALOPRAM
     Route: 048
  3. CITALOPRAM [Suspect]
     Active Substance: CITALOPRAM
     Route: 048
  4. CITALOPRAM [Suspect]
     Active Substance: CITALOPRAM
  5. TOPIRAMATE [Concomitant]
     Active Substance: TOPIRAMATE
  6. TOPIRAMATE [Concomitant]
     Active Substance: TOPIRAMATE
     Route: 065
  7. TOPIRAMATE [Concomitant]
     Active Substance: TOPIRAMATE
     Route: 065
  8. TOPIRAMATE [Concomitant]
     Active Substance: TOPIRAMATE
  9. CENOBAMATE [Concomitant]
     Active Substance: CENOBAMATE
  10. CENOBAMATE [Concomitant]
     Active Substance: CENOBAMATE
     Route: 065
  11. CENOBAMATE [Concomitant]
     Active Substance: CENOBAMATE
     Route: 065
  12. CENOBAMATE [Concomitant]
     Active Substance: CENOBAMATE
  13. LEVETIRACETAM [Concomitant]
     Active Substance: LEVETIRACETAM
  14. LEVETIRACETAM [Concomitant]
     Active Substance: LEVETIRACETAM
     Route: 065
  15. LEVETIRACETAM [Concomitant]
     Active Substance: LEVETIRACETAM
     Route: 065
  16. LEVETIRACETAM [Concomitant]
     Active Substance: LEVETIRACETAM

REACTIONS (3)
  - Drug abuse [Unknown]
  - Nausea [Recovering/Resolving]
  - Vomiting [Recovering/Resolving]

NARRATIVE: CASE EVENT DATE: 20250627
